FAERS Safety Report 6779508-X (Version None)
Quarter: 2010Q2

REPORT INFORMATION
  Report Type: 
  Country: None (occurrence: None)
  Receive Date: 20100618
  Receipt Date: 20100615
  Transmission Date: 20101027
  Serious: Yes (Other)
  Sender: FDA-Public Use
  Company Number: US-ELI_LILLY_AND_COMPANY-US201006004201

PATIENT
  Sex: Male

DRUGS (3)
  1. HUMALOG [Suspect]
     Indication: DIABETES MELLITUS
     Dosage: 8 U, EACH MORNING
  2. HUMALOG [Suspect]
     Dosage: 10 U, OTHER
  3. HUMALOG [Suspect]
     Dosage: 12 U, EACH EVENING

REACTIONS (4)
  - EYE HAEMORRHAGE [None]
  - POOR QUALITY DRUG ADMINISTERED [None]
  - SKIN ODOUR ABNORMAL [None]
  - VISUAL ACUITY REDUCED [None]
